FAERS Safety Report 14690531 (Version 1)
Quarter: 2018Q1

REPORT INFORMATION
  Report Type: Spontaneous
  Country: ES (occurrence: ES)
  Receive Date: 20180328
  Receipt Date: 20180328
  Transmission Date: 20180509
  Serious: Yes (Other)
  Sender: FDA-Public Use
  Company Number: ES-FRESENIUS KABI-FK201803792

PATIENT
  Age: 48 Year
  Sex: Male

DRUGS (5)
  1. COLISTIMETHATE (MANUFACTURER UNKNOWN) [Suspect]
     Active Substance: COLISTIMETHATE SODIUM
     Indication: PNEUMONIA
     Route: 055
  2. AZITHROMYCIN ANHYDROUS. [Concomitant]
     Active Substance: AZITHROMYCIN ANHYDROUS
     Indication: PNEUMONIA
     Route: 065
  3. MEROPENEM. [Concomitant]
     Active Substance: MEROPENEM
     Indication: PNEUMONIA
     Route: 065
  4. COLISTIMETHATE (MANUFACTURER UNKNOWN) [Suspect]
     Active Substance: COLISTIMETHATE SODIUM
     Indication: PNEUMONIA PSEUDOMONAL
     Route: 042
  5. AZTREONAM. [Concomitant]
     Active Substance: AZTREONAM
     Indication: PNEUMONIA
     Route: 065

REACTIONS (7)
  - Pathogen resistance [Recovered/Resolved]
  - Herpes simplex pneumonia [Recovered/Resolved]
  - Intentional product use issue [Recovered/Resolved]
  - Pseudomembranous colitis [Recovered/Resolved]
  - Acute kidney injury [Recovered/Resolved]
  - Pseudomonas infection [Recovered/Resolved]
  - Clostridium difficile colitis [Recovered/Resolved]
